FAERS Safety Report 23152035 (Version 1)
Quarter: 2023Q4

REPORT INFORMATION
  Report Type: Spontaneous
  Country: DE (occurrence: DE)
  Receive Date: 20231107
  Receipt Date: 20231107
  Transmission Date: 20240110
  Serious: Yes (Hospitalization)
  Sender: FDA-Public Use
  Company Number: DE-BAXTER-2023BAX029888

PATIENT
  Age: 76 Year
  Sex: Male
  Weight: 78 kg

DRUGS (49)
  1. DEXPANTHENOL [Suspect]
     Active Substance: DEXPANTHENOL
     Indication: Product used for unknown indication
     Dosage: (DOSAGE FORM: EYE OINTMENT) ONCE IN THE NIGHT)
  2. AMINO ACIDS\DEXTROSE\ELECTROLYTES NOS\SOYBEAN OIL [Suspect]
     Active Substance: AMINO ACIDS\DEXTROSE\ELECTROLYTES NOS\SOYBEAN OIL
     Indication: Parenteral nutrition
     Dosage: UNK
  3. POLYETHYLENE GLYCOL 3350\POTASSIUM CHLORIDE\SODIUM BICARBONATE\SODIUM [Suspect]
     Active Substance: POLYETHYLENE GLYCOL 3350\POTASSIUM CHLORIDE\SODIUM BICARBONATE\SODIUM CHLORIDE
     Indication: Product used for unknown indication
     Dosage: UNK(1 BAG IN MORNING)
  4. PREDNISONE [Concomitant]
     Active Substance: PREDNISONE
     Indication: Product used for unknown indication
     Dosage: 5 MG Z. N
  5. PREDNISONE [Concomitant]
     Active Substance: PREDNISONE
     Dosage: (2 MG M ALTERED. ACTIVE INGREDIENT RELEASE) (NOTES: 1 X1 TABLET 10 PM) (FORM: RETTABL)
  6. PANCRELIPASE [Suspect]
     Active Substance: PANCRELIPASE
     Dosage: 25000 IU, TID(ONCE IN MORNING, NOON AND AT NIGHT)
  7. PANCRELIPASE [Suspect]
     Active Substance: PANCRELIPASE
     Indication: Product used for unknown indication
     Dosage: (ONCE IN THE MORNING, NOON, EVENING AND AT NIGHT)
  8. PANCRELIPASE [Suspect]
     Active Substance: PANCRELIPASE
     Dosage: (ONCEIN THE MORNING, NOON AND EVENING)
  9. ROBINUL [Suspect]
     Active Substance: GLYCOPYRROLATE
     Indication: Product used for unknown indication
     Dosage: UNK(0.2 MG/ML SOLUTION FOR INJECTION)
  10. TAVOR (LORAZEPAM) [Suspect]
     Active Substance: LORAZEPAM
     Indication: Product used for unknown indication
     Dosage: UNK(MELTING TABLETS)
  11. FENTANYL [Suspect]
     Active Substance: FENTANYL\FENTANYL CITRATE
     Indication: Product used for unknown indication
     Dosage: 12.5 MCG PER HOUR
     Dates: end: 20230814
  12. FENTANYL [Suspect]
     Active Substance: FENTANYL\FENTANYL CITRATE
     Dosage: UNK
  13. FENTANYL [Suspect]
     Active Substance: FENTANYL\FENTANYL CITRATE
     Dosage: 12 UG/H MATRIXPFL 2.89MG/PF (CHANGE EVERY 3 DAYS)
  14. FENTANYL [Suspect]
     Active Substance: FENTANYL\FENTANYL CITRATE
     Dosage: 25 UG/H MATRIXPFL 5.78 MG/PF(CHANGE EVERY 3 DAYS)
  15. CALCIUM CHLORIDE\DEXTROSE\POTASSIUM CHLORIDE\SODIUM CHLORIDE [Suspect]
     Active Substance: CALCIUM CHLORIDE\DEXTROSE\POTASSIUM CHLORIDE\SODIUM CHLORIDE
     Indication: Parenteral nutrition
     Dosage: 1000 ML ONCE IN THE MORNING DAILY RUN OVER 4-5 H
     Route: 042
  16. METHOTREXATE [Concomitant]
     Active Substance: METHOTREXATE
     Indication: Product used for unknown indication
     Dosage: 15 MG, QW
     Route: 058
     Dates: end: 20210709
  17. BISOPROLOL [Suspect]
     Active Substance: BISOPROLOL\BISOPROLOL FUMARATE
     Indication: Product used for unknown indication
     Dosage: 1.25 MG, QD(EVENING)
     Route: 048
  18. VITAMIN D3 [Suspect]
     Active Substance: CHOLECALCIFEROL
     Indication: Product used for unknown indication
     Dosage: UNK(DROP ONCE IN MORNING, NOON AND NIGHT)
  19. VITAMIN D3 [Suspect]
     Active Substance: CHOLECALCIFEROL
     Dosage: 1*4 DAILY
  20. VITAMIN D3 [Suspect]
     Active Substance: CHOLECALCIFEROL
     Dosage: 4 DROPS DAILY
  21. SODIUM CITRATE\SODIUM LAURYL SULFOACETATE [Suspect]
     Active Substance: SODIUM CITRATE\SODIUM LAURYL SULFOACETATE
     Indication: Product used for unknown indication
     Dosage: (120.26) (STRENGTH: 64.5 MG)
  22. METAMIZOLE [Suspect]
     Active Substance: METAMIZOLE
     Indication: Product used for unknown indication
     Dosage: DROP EVERY 6 HRS
  23. ABSTRAL [Suspect]
     Active Substance: FENTANYL CITRATE
     Indication: Breakthrough pain
     Dosage: 100 MICROGRAM PIECE
  24. PANTOPRAZOLE [Concomitant]
     Active Substance: PANTOPRAZOLE
     Indication: Product used for unknown indication
     Dosage: 40 MG, BID(1-0-1)
  25. SODIUM PICOSULFATE [Suspect]
     Active Substance: SODIUM PICOSULFATE
     Indication: Laxative supportive care
     Dosage: 18 DROPS
  26. LEVOTHYROXINE SODIUM [Suspect]
     Active Substance: LEVOTHYROXINE SODIUM
     Indication: Product used for unknown indication
     Dosage: 50 MCG QD
     Route: 048
  27. DEXTROSE [Suspect]
     Active Substance: DEXTROSE\DEXTROSE MONOHYDRATE
     Indication: Parenteral nutrition
     Dosage: AT AN UNSPECIFIED DOSE ONCE IN THE MORNING AS SHORT INFUSION
     Route: 042
  28. ESOMEPRAZOLE MAGNESIUM [Suspect]
     Active Substance: ESOMEPRAZOLE\ESOMEPRAZOLE MAGNESIUM\ESOMEPRAZOLE MAGNESIUM DIHYDRATE
     Indication: Product used for unknown indication
     Dosage: 40 MG PIECE ONCE IN THE AFTERNOON
  29. ASPIRIN [Suspect]
     Active Substance: ASPIRIN
     Indication: Product used for unknown indication
     Dosage: 100 MG, BID(MORNING AND AT NIGHT ONCE)
     Route: 048
  30. OXYCODONE [Suspect]
     Active Substance: OXYCODONE
     Indication: Product used for unknown indication
     Dosage: 5 MG (3 PC EVERY 24 HR)
     Route: 048
  31. CARBOHYDRATES\FATTY ACIDS\MINERALS\PROTEIN\VITAMINS [Suspect]
     Active Substance: CARBOHYDRATES\FATTY ACIDS\MINERALS\PROTEIN\VITAMINS
     Indication: Product used for unknown indication
     Dosage: 2 TIMES DAILY
  32. FOLIC ACID [Concomitant]
     Active Substance: FOLIC ACID
     Indication: Product used for unknown indication
     Dosage: 10 MG, QW(24 HOURS AFTER MTX INTAKE)
  33. MORPHINE [Suspect]
     Active Substance: MORPHINE
     Indication: Product used for unknown indication
     Dosage: 10 MG INJECTION SOLUTION
  34. ELECTROLYTES NOS\MINERALS [Suspect]
     Active Substance: ELECTROLYTES NOS\MINERALS
     Indication: Parenteral nutrition
     Dosage: UNK(ONCE IN THE MORNING AS SHORT INFUSION)
     Route: 042
  35. ACTRAPID [Suspect]
     Active Substance: INSULIN HUMAN
     Indication: Product used for unknown indication
     Dosage: UNK
     Route: 058
  36. SULFASALAZINE [Concomitant]
     Active Substance: SULFASALAZINE
     Indication: Product used for unknown indication
     Dosage: UNK
  37. METFORMIN [Suspect]
     Active Substance: METFORMIN HYDROCHLORIDE
     Indication: Product used for unknown indication
     Dosage: 1000 MG, BID(MORNING AND NIGHT
     Route: 048
  38. PROMETHAZINE [Suspect]
     Active Substance: PROMETHAZINE HYDROCHLORIDE
     Indication: Product used for unknown indication
     Dosage: UNK(10 DROPS AT NIGHT)
  39. FERRO-SANOL DUODENAL [Suspect]
     Active Substance: FERROUS GLYCINE SULFATE
     Indication: Product used for unknown indication
     Dosage: 100 MG (1 X 1)
     Route: 048
  40. AMINO ACIDS\DEXTROSE\ELECTROLYTES NOS\SOYBEAN OIL [Suspect]
     Active Substance: AMINO ACIDS\DEXTROSE\ELECTROLYTES NOS\SOYBEAN OIL
     Indication: Parenteral nutrition
     Dosage: 2200 KCAL FOR 24 H (MON-FRI)
     Route: 042
  41. PREDNISOLONE [Concomitant]
     Active Substance: PREDNISOLONE
     Indication: Product used for unknown indication
     Dosage: UNK
     Dates: start: 202108
  42. PREDNISOLONE [Concomitant]
     Active Substance: PREDNISOLONE
     Dosage: 10 MG, QD
     Dates: start: 20230201
  43. PREDNISOLONE [Concomitant]
     Active Substance: PREDNISOLONE
     Dosage: 5 MG, QD(MORNING)
  44. PREDNISOLONE [Concomitant]
     Active Substance: PREDNISOLONE
     Dosage: 5 MG (GALEN) PIECE (AT NIGHT)
  45. CERNEVIT [Suspect]
     Active Substance: VITAMINS
     Indication: Parenteral nutrition
     Dosage: UNK(ONCE IN THE MORNING AS SHORT INFUSION)
     Route: 042
  46. ENOXAPARIN SODIUM [Suspect]
     Active Substance: ENOXAPARIN SODIUM
     Indication: Product used for unknown indication
     Dosage: 0.4 MG, BID(ONCE IN MORNING AND AT NIGHT)
  47. MAGNESIUM [Suspect]
     Active Substance: MAGNESIUM
     Dosage: 300 MG, QD(ONCE IN THE NIGHT)
     Route: 048
  48. MAGNESIUM [Suspect]
     Active Substance: MAGNESIUM
     Indication: Product used for unknown indication
     Dosage: (300) PIECE ONCE IN THE NOON (BREAK)
  49. VITAMIN B COMPLEX [Suspect]
     Active Substance: CYANOCOBALAMIN\DEXPANTHENOL\NIACINAMIDE\PYRIDOXINE HYDROCHLORIDE\RIBOFLAVIN 5^-PHOSPHATE SODIUM\THIA
     Indication: Product used for unknown indication
     Dosage: UNK(ONCE IN THE MORNING)
     Route: 048

REACTIONS (10)
  - General physical health deterioration [Unknown]
  - Blood pressure decreased [Unknown]
  - Abscess [Recovering/Resolving]
  - Diarrhoea [Unknown]
  - Drug intolerance [Unknown]
  - Dehiscence [Unknown]
  - Body temperature increased [Unknown]
  - Tachycardia [Unknown]
  - Chills [Unknown]
  - Drug hypersensitivity [Unknown]
